FAERS Safety Report 18026168 (Version 2)
Quarter: 2020Q3

REPORT INFORMATION
  Report Type: Report from Study
  Country: US (occurrence: US)
  Receive Date: 20200715
  Receipt Date: 20200915
  Transmission Date: 20201103
  Serious: Yes (Hospitalization, Other)
  Sender: FDA-Public Use
  Company Number: US-BAYER-2020-141917

PATIENT
  Age: 80 Year
  Sex: Female
  Weight: 49.89 kg

DRUGS (2)
  1. ADEMPAS [Suspect]
     Active Substance: RIOCIGUAT
     Indication: PULMONARY ARTERIAL HYPERTENSION
     Dosage: UNK
     Dates: start: 20170224
  2. ADEMPAS [Suspect]
     Active Substance: RIOCIGUAT
     Indication: PULMONARY ARTERIAL HYPERTENSION
     Dosage: 1 MG, TID
     Route: 048

REACTIONS (4)
  - Muscular weakness [None]
  - Gait inability [None]
  - Hospitalisation [None]
  - Pulmonary arterial hypertension [None]

NARRATIVE: CASE EVENT DATE: 202005
